FAERS Safety Report 24560974 (Version 1)
Quarter: 2024Q4

REPORT INFORMATION
  Report Type: Spontaneous
  Country: US (occurrence: US)
  Receive Date: 20241029
  Receipt Date: 20241029
  Transmission Date: 20250114
  Serious: Yes (Hospitalization)
  Sender: INCYTE
  Company Number: US-INCYTE CORPORATION-2024IN011283

PATIENT

DRUGS (1)
  1. JAKAFI [Suspect]
     Active Substance: RUXOLITINIB
     Indication: Polycythaemia vera
     Dosage: 25 MILLIGRAM, BID
     Route: 048
     Dates: start: 202005

REACTIONS (6)
  - Skin infection [Not Recovered/Not Resolved]
  - Wound infection [Unknown]
  - Spinal pain [Unknown]
  - Neck pain [Unknown]
  - Prostatitis [Unknown]
  - Weight increased [Unknown]
